FAERS Safety Report 8595929-7 (Version None)
Quarter: 2012Q3

REPORT INFORMATION
  Report Type: 
  Country: None (occurrence: None)
  Receive Date: 20120807
  Receipt Date: 20120807
  Transmission Date: 20120928
  Serious: No
  Sender: FDA-Public Use
  Company Number: None

PATIENT
  Sex: Male

DRUGS (1)
  1. AMOXICILLIN [Suspect]
     Indication: ORAL SURGERY
     Dosage: TID ORAL
     Route: 048
     Dates: start: 20120717, end: 20120722

REACTIONS (3)
  - PRURITUS [None]
  - RASH MACULAR [None]
  - LOCAL SWELLING [None]
